FAERS Safety Report 23674274 (Version 1)
Quarter: 2024Q1

REPORT INFORMATION
  Report Type: Spontaneous
  Country: FR (occurrence: FR)
  Receive Date: 20240326
  Receipt Date: 20240326
  Transmission Date: 20240409
  Serious: Yes (Hospitalization)
  Sender: FDA-Public Use
  Company Number: None

PATIENT
  Age: 50 Year
  Sex: Male

DRUGS (4)
  1. RITUXIMAB [Suspect]
     Active Substance: RITUXIMAB
     Indication: Product used for unknown indication
     Dosage: MOST RECENT DOSE: 09/OCT/2023
     Route: 065
     Dates: start: 20231009, end: 20231009
  2. CARBOPLATIN [Suspect]
     Active Substance: CARBOPLATIN
     Indication: Product used for unknown indication
     Dosage: MOST RECENT DOSE: 09/OCT/2023
     Route: 065
     Dates: start: 20231009, end: 20231009
  3. DEXAMETHASONE [Suspect]
     Active Substance: DEXAMETHASONE
     Indication: Product used for unknown indication
     Dosage: MOST RECENT DOSE: 12/OCT/2023
     Route: 065
     Dates: start: 20231009, end: 20231012
  4. CYTARABINE [Suspect]
     Active Substance: CYTARABINE
     Indication: Nodular lymphocyte predominant Hodgkin lymphoma
     Dosage: MOST RECENT DOSE: 10/OCT/2023
     Route: 065
     Dates: start: 20231010, end: 20231010

REACTIONS (2)
  - Condition aggravated [Recovered/Resolved]
  - Haemophagocytic lymphohistiocytosis [Recovered/Resolved]

NARRATIVE: CASE EVENT DATE: 20231012
